FAERS Safety Report 14701614 (Version 1)
Quarter: 2018Q1

REPORT INFORMATION
  Report Type: Report from Study
  Country: CN (occurrence: CN)
  Receive Date: 20180331
  Receipt Date: 20180331
  Transmission Date: 20180509
  Serious: Yes (Hospitalization)
  Sender: FDA-Public Use
  Company Number: CN-ROCHE-2022743

PATIENT
  Sex: Male
  Weight: 40 kg

DRUGS (2)
  1. AVASTIN [Suspect]
     Active Substance: BEVACIZUMAB
     Route: 041
  2. AVASTIN [Suspect]
     Active Substance: BEVACIZUMAB
     Indication: COLORECTAL CANCER
     Route: 041
     Dates: start: 20161008, end: 20171102

REACTIONS (6)
  - Asthenia [Unknown]
  - Protein urine present [Unknown]
  - Oedema [Unknown]
  - Diabetes mellitus [Unknown]
  - Nephrotic syndrome [Unknown]
  - Movement disorder [Unknown]
